FAERS Safety Report 17971867 (Version 3)
Quarter: 2020Q4

REPORT INFORMATION
  Report Type: Spontaneous
  Country: FR (occurrence: FR)
  Receive Date: 20200702
  Receipt Date: 20201130
  Transmission Date: 20210113
  Serious: Yes (Other)
  Sender: FDA-Public Use
  Company Number: FR-PFIZER INC-2020251144

PATIENT
  Age: 53 Year
  Sex: Female

DRUGS (8)
  1. VALIUM [Suspect]
     Active Substance: DIAZEPAM
     Dosage: UNK
     Route: 065
  2. LEXOMIL [Suspect]
     Active Substance: BROMAZEPAM
     Dosage: 3 DF, 1X/DAY
     Route: 048
  3. NORDAZEPAM [Suspect]
     Active Substance: NORDAZEPAM
     Dosage: UNK
     Route: 065
  4. IMOVANE [Suspect]
     Active Substance: ZOPICLONE
     Dosage: UNK
     Route: 065
  5. TERCIAN [CYAMEMAZINE] [Suspect]
     Active Substance: CYAMEMAZINE
     Dosage: UNK
     Route: 065
  6. XANAX [Suspect]
     Active Substance: ALPRAZOLAM
     Dosage: UNK
     Route: 065
  7. TRAMADOL. [Suspect]
     Active Substance: TRAMADOL
     Dosage: UNK
     Route: 065
  8. SERESTA [Suspect]
     Active Substance: OXAZEPAM
     Dosage: UNK
     Route: 065

REACTIONS (16)
  - Weight decreased [Recovered/Resolved]
  - Malaise [Not Recovered/Not Resolved]
  - Nausea [Recovered/Resolved]
  - Cholinergic syndrome [Recovered/Resolved]
  - Incorrect product administration duration [Unknown]
  - Fatigue [Not Recovered/Not Resolved]
  - Chemical submission [Unknown]
  - Off label use [Unknown]
  - Exposure during pregnancy [Unknown]
  - Vomiting [Recovered/Resolved]
  - Wrong rate [Unknown]
  - Drug level increased [Unknown]
  - Suicidal ideation [Recovered/Resolved]
  - Major depression [Recovered/Resolved]
  - Poisoning [Recovered/Resolved]
  - Salivary hypersecretion [Recovered/Resolved]

NARRATIVE: CASE EVENT DATE: 2020
